FAERS Safety Report 7712676-1 (Version None)
Quarter: 2011Q3

REPORT INFORMATION
  Report Type: 
  Country: None (occurrence: None)
  Receive Date: 20110826
  Receipt Date: 20110823
  Transmission Date: 20111222
  Serious: Yes (Hospitalization, Other)
  Sender: FDA-Public Use
  Company Number: US-MERCK-1010USA01935

PATIENT
  Age: 76 Year
  Sex: Female

DRUGS (1)
  1. FOSAMAX [Suspect]
     Indication: BONE DISORDER
     Route: 048
     Dates: start: 19990101, end: 20090101

REACTIONS (4)
  - HIP FRACTURE [None]
  - OSTEOPOROSIS [None]
  - FEMUR FRACTURE [None]
  - BONE DENSITY DECREASED [None]
